FAERS Safety Report 22100498 (Version 1)
Quarter: 2023Q1

REPORT INFORMATION
  Report Type: Spontaneous
  Country: DE (occurrence: None)
  Receive Date: 20230316
  Receipt Date: 20230316
  Transmission Date: 20230417
  Serious: Yes (Other)
  Sender: FDA-Public Use
  Company Number: 2023A059256

PATIENT
  Age: 891 Month
  Sex: Female

DRUGS (6)
  1. FASLODEX [Suspect]
     Active Substance: FULVESTRANT
     Dosage: 250MG
     Route: 030
  2. TAMOXIFEN [Suspect]
     Active Substance: TAMOXIFEN
     Route: 048
  3. ENHERTU [Concomitant]
     Active Substance: FAM-TRASTUZUMAB DERUXTECAN-NXKI
  4. LYRICS [Concomitant]
     Dosage: 75 MG
     Dates: start: 20230210
  5. TORSEMIDE [Concomitant]
     Active Substance: TORSEMIDE
     Dosage: 10 MG
     Route: 048
     Dates: start: 20230210
  6. DEXAMETHASONE [Concomitant]
     Active Substance: DEXAMETHASONE
     Dosage: 2MG
     Route: 048
     Dates: start: 20230210

REACTIONS (6)
  - Breast cancer recurrent [Unknown]
  - Metastases to bone [Unknown]
  - Tumour pain [Unknown]
  - Osteonecrosis of jaw [Unknown]
  - COVID-19 [Unknown]
  - Heart rate irregular [Unknown]

NARRATIVE: CASE EVENT DATE: 20210801
